FAERS Safety Report 9630896 (Version 2)
Quarter: 2013Q4

REPORT INFORMATION
  Report Type: Spontaneous
  Country: FR (occurrence: FR)
  Receive Date: 20131018
  Receipt Date: 20131111
  Transmission Date: 20140711
  Serious: Yes (Life-Threatening, Hospitalization, Other)
  Sender: FDA-Public Use
  Company Number: FR-JNJFOC-20131009731

PATIENT
  Age: 58 Year
  Sex: Male
  Weight: 60 kg

DRUGS (7)
  1. PREZISTA [Suspect]
     Indication: HIV INFECTION
     Route: 048
     Dates: start: 20130615, end: 20131009
  2. ZECLAR [Interacting]
     Indication: ANTIBIOTIC PROPHYLAXIS
     Route: 048
     Dates: start: 20110415, end: 20131009
  3. EPIVIR [Concomitant]
     Indication: HIV INFECTION
     Route: 048
     Dates: start: 20130615
  4. ZIAGEN [Concomitant]
     Indication: HIV INFECTION
     Dosage: 300.0 TWICE
     Route: 048
     Dates: start: 20130615
  5. EUPRESSYL [Concomitant]
     Indication: HYPERTENSION
     Route: 065
     Dates: start: 20110415
  6. AMLOR [Concomitant]
     Indication: HYPERTENSION
     Route: 048
     Dates: start: 20110415
  7. ANSATIPINE [Concomitant]
     Indication: MYCOBACTERIUM AVIUM COMPLEX INFECTION
     Route: 048
     Dates: start: 20110415, end: 20131009

REACTIONS (6)
  - Cardiac arrest [Recovered/Resolved]
  - Electrocardiogram QT prolonged [Unknown]
  - Hypokalaemia [Unknown]
  - Contraindication to medical treatment [Recovered/Resolved]
  - Drug interaction [Recovered/Resolved]
  - Drug prescribing error [Recovered/Resolved]
